FAERS Safety Report 14672423 (Version 1)
Quarter: 2018Q1

REPORT INFORMATION
  Report Type: Spontaneous
  Country: US (occurrence: US)
  Receive Date: 20180323
  Receipt Date: 20180323
  Transmission Date: 20180509
  Serious: No
  Sender: FDA-Public Use
  Company Number: US-ASTRAZENECA-2018SE23390

PATIENT
  Age: 859 Month
  Sex: Female
  Weight: 90.7 kg

DRUGS (3)
  1. CRESTOR [Suspect]
     Active Substance: ROSUVASTATIN CALCIUM
     Indication: BLOOD CHOLESTEROL INCREASED
     Dosage: GENERIC CRESTOR, 5 MG DAILY
     Route: 048
     Dates: start: 201712, end: 201802
  2. CRESTOR [Suspect]
     Active Substance: ROSUVASTATIN CALCIUM
     Indication: BLOOD CHOLESTEROL INCREASED
     Route: 048
     Dates: start: 2003, end: 201612
  3. PROTONIX [Concomitant]
     Active Substance: PANTOPRAZOLE SODIUM
     Indication: DYSPEPSIA
     Route: 048
     Dates: start: 2003

REACTIONS (3)
  - Dysgeusia [Recovered/Resolved]
  - Therapy cessation [Unknown]
  - Urine odour abnormal [Recovered/Resolved]

NARRATIVE: CASE EVENT DATE: 201801
